FAERS Safety Report 6405342 (Version 2)
Quarter: 2019Q1

REPORT INFORMATION
  Report Type: Spontaneous
  Country: GB (occurrence: GB)
  Receive Date: 20070904
  Receipt Date: 20190311
  Transmission Date: 20190418
  Serious: Yes (Other)
  Sender: FDA-Public Use
  Company Number: GB-PFIZER INC-2007071562

PATIENT
  Age: 34 Year
  Sex: Female

DRUGS (3)
  1. LOCERYL [Concomitant]
     Active Substance: AMOROLFINE HYDROCHLORIDE
     Dates: start: 20070606
  2. NICOTINE. [Concomitant]
     Active Substance: NICOTINE
  3. CHAMPIX [Suspect]
     Active Substance: VARENICLINE TARTRATE
     Indication: SMOKING CESSATION THERAPY
     Route: 048
     Dates: start: 20070606, end: 20070725

REACTIONS (2)
  - Mucosal inflammation [Recovering/Resolving]
  - Oral herpes [Recovering/Resolving]

NARRATIVE: CASE EVENT DATE: 2007
